FAERS Safety Report 17023655 (Version 1)
Quarter: 2019Q4

REPORT INFORMATION
  Report Type: Spontaneous
  Country: GB (occurrence: GB)
  Receive Date: 20191113
  Receipt Date: 20191113
  Transmission Date: 20200122
  Serious: Yes (Life-Threatening, Hospitalization, Other)
  Sender: FDA-Public Use
  Company Number: GB-JNJFOC-20191109047

PATIENT
  Age: 14 Year
  Sex: Female
  Weight: 63 kg

DRUGS (1)
  1. CETIRIZINE HYDROCHLORIDE. [Suspect]
     Active Substance: CETIRIZINE HYDROCHLORIDE
     Indication: SWELLING
     Route: 048
     Dates: start: 20190228, end: 20190305

REACTIONS (5)
  - Seizure [Recovered/Resolved]
  - Dizziness [Recovered/Resolved]
  - Dyskinesia [Recovered/Resolved]
  - Syncope [Recovered/Resolved]
  - Tremor [Recovered/Resolved]

NARRATIVE: CASE EVENT DATE: 20190315
